FAERS Safety Report 14681647 (Version 1)
Quarter: 2018Q1

REPORT INFORMATION
  Report Type: Spontaneous
  Country: US (occurrence: US)
  Receive Date: 20180326
  Receipt Date: 20180326
  Transmission Date: 20180509
  Serious: Yes (Other)
  Sender: FDA-Public Use
  Company Number: US-NEPHRON STERILE COMPOUNDING CENTER-2044554

PATIENT

DRUGS (1)
  1. ROCURONIUM BROMIDE INJECTION 50MG/5ML (10MG/ML) [Suspect]
     Active Substance: ROCURONIUM BROMIDE
     Indication: SURGERY
     Dates: start: 20180315

REACTIONS (1)
  - Drug ineffective [None]

NARRATIVE: CASE EVENT DATE: 20180315
